FAERS Safety Report 25217833 (Version 1)
Quarter: 2025Q2

REPORT INFORMATION
  Report Type: Report from Study
  Country: AR (occurrence: AR)
  Receive Date: 20250421
  Receipt Date: 20250421
  Transmission Date: 20250717
  Serious: Yes (Other)
  Sender: ABBVIE
  Company Number: AR-ABBVIE-6237523

PATIENT
  Age: 34 Year
  Sex: Female

DRUGS (2)
  1. HUMIRA [Suspect]
     Active Substance: ADALIMUMAB
     Indication: Rheumatoid arthritis
     Dosage: AC 40/0.4
     Route: 058
     Dates: start: 20160401
  2. HUMIRA [Suspect]
     Active Substance: ADALIMUMAB
     Dosage: AC 40/0.4
     Route: 058

REACTIONS (5)
  - Uterine leiomyoma [Recovered/Resolved]
  - Postoperative wound infection [Recovered/Resolved]
  - Heavy menstrual bleeding [Recovered/Resolved]
  - Anaemia [Recovered/Resolved]
  - Product dispensing error [Not Recovered/Not Resolved]

NARRATIVE: CASE EVENT DATE: 20230101
